FAERS Safety Report 7231003-X (Version None)
Quarter: 2011Q1

REPORT INFORMATION
  Report Type: 
  Country: None (occurrence: None)
  Receive Date: 20110118
  Receipt Date: 20110110
  Transmission Date: 20110831
  Serious: Yes (Death, Other)
  Sender: FDA-Public Use
  Company Number: US-ROCHE-752450

PATIENT

DRUGS (2)
  1. TRASTUZUMAB [Suspect]
     Route: 065
  2. ANTHRACYCLINE NOS [Suspect]
     Route: 065

REACTIONS (6)
  - RESPIRATORY FAILURE [None]
  - HAEMORRHAGE INTRACRANIAL [None]
  - VENTRICULAR TACHYCARDIA [None]
  - EJECTION FRACTION DECREASED [None]
  - SEPTIC SHOCK [None]
  - HYPOKALAEMIA [None]
